FAERS Safety Report 13026349 (Version 1)
Quarter: 2016Q4

REPORT INFORMATION
  Report Type: Spontaneous
  Country: US (occurrence: US)
  Receive Date: 20161214
  Receipt Date: 20161214
  Transmission Date: 20170207
  Serious: Yes (Hospitalization, Other)
  Sender: FDA-Public Use
  Company Number: US-APOPHARMA USA, INC.-2016AP015576

PATIENT
  Age: 19 Year
  Sex: Male

DRUGS (2)
  1. ALKERAN [Suspect]
     Active Substance: MELPHALAN
     Indication: METASTASES TO SPINE
     Dosage: 16 MG/M2, SINGLE
     Route: 013
  2. ALKERAN [Suspect]
     Active Substance: MELPHALAN
     Indication: EWING^S SARCOMA

REACTIONS (1)
  - Febrile neutropenia [Unknown]
